FAERS Safety Report 7155686-8 (Version None)
Quarter: 2010Q4

REPORT INFORMATION
  Report Type: 
  Country: None (occurrence: None)
  Receive Date: 20101214
  Receipt Date: 20101130
  Transmission Date: 20110411
  Serious: Yes (Other)
  Sender: FDA-Public Use
  Company Number: FR-CELGENEUS-056-C5013-10120041

PATIENT
  Sex: Male
  Weight: 67 kg

DRUGS (2)
  1. CC-5013\PLACEBO [Suspect]
     Indication: MANTLE CELL LYMPHOMA
     Route: 048
     Dates: start: 20100707
  2. CC-5013\PLACEBO [Suspect]
     Route: 048
     Dates: start: 20101027, end: 20101116

REACTIONS (3)
  - MALIGNANT MELANOMA [None]
  - MALIGNANT NEOPLASM OF EYELID [None]
  - SQUAMOUS CELL CARCINOMA [None]
